FAERS Safety Report 19464293 (Version 2)
Quarter: 2021Q2

REPORT INFORMATION
  Report Type: Spontaneous
  Country: CH (occurrence: CH)
  Receive Date: 20210626
  Receipt Date: 20210626
  Transmission Date: 20210717
  Serious: Yes (Other)
  Sender: FDA-Public Use
  Company Number: CH-ABBVIE-21K-151-3966890-00

PATIENT
  Sex: Female

DRUGS (2)
  1. HUMIRA [Suspect]
     Active Substance: ADALIMUMAB
     Indication: UVEITIS
     Route: 058
     Dates: start: 2018
  2. HUMIRA [Suspect]
     Active Substance: ADALIMUMAB
     Indication: SARCOIDOSIS

REACTIONS (2)
  - Off label use [Not Recovered/Not Resolved]
  - Malignant melanoma in situ [Unknown]

NARRATIVE: CASE EVENT DATE: 2018
